FAERS Safety Report 6677496-8 (Version None)
Quarter: 2010Q2

REPORT INFORMATION
  Report Type: 
  Country: None (occurrence: None)
  Receive Date: 20100412
  Receipt Date: 20100331
  Transmission Date: 20101027
  Serious: Yes (Disabling)
  Sender: FDA-Public Use
  Company Number: B0646070A

PATIENT
  Sex: Female
  Weight: 60 kg

DRUGS (4)
  1. ZOV 800 [Suspect]
     Indication: DRUG USE FOR UNKNOWN INDICATION
     Dosage: 800MG PER DAY
     Route: 048
     Dates: start: 20100307, end: 20100320
  2. PEVISONE [Concomitant]
     Dates: start: 20100307, end: 20100317
  3. DIANE 35 [Concomitant]
     Route: 048
     Dates: start: 20090101
  4. ERYFLUID [Concomitant]
     Dates: end: 20100317

REACTIONS (7)
  - ABDOMINAL PAIN [None]
  - ABDOMINAL PAIN UPPER [None]
  - ABNORMAL FAECES [None]
  - DIARRHOEA [None]
  - FAECES PALE [None]
  - FLATULENCE [None]
  - MALAISE [None]
